FAERS Safety Report 5174776-2 (Version None)
Quarter: 2006Q4

REPORT INFORMATION
  Report Type: 
  Country: None (occurrence: None)
  Receive Date: 20061214
  Receipt Date: 20060609
  Transmission Date: 20070319
  Serious: No
  Sender: FDA-Public Use
  Company Number: US-AMGEN-KDL182488

PATIENT
  Sex: Female

DRUGS (7)
  1. ENBREL [Suspect]
     Indication: PSORIATIC ARTHROPATHY
     Route: 058
     Dates: start: 20050216
  2. METHOTREXATE [Suspect]
     Route: 048
     Dates: start: 20030101
  3. CLONAZEPAM [Concomitant]
  4. ETODOLAC [Concomitant]
  5. DILAUDID [Concomitant]
  6. VITAMIN B COMPLEX CAP [Concomitant]
  7. SOMA [Concomitant]

REACTIONS (2)
  - HEPATIC ENZYME INCREASED [None]
  - NASOPHARYNGITIS [None]
